FAERS Safety Report 25972703 (Version 1)
Quarter: 2025Q4

REPORT INFORMATION
  Report Type: 
  Country: AU (occurrence: AU)
  Receive Date: 20251029
  Receipt Date: 20251029
  Transmission Date: 20260118
  Serious: Yes (Other)
  Sender: CELLTRION
  Company Number: AU-CELLTRION INC.-2025AU038818

PATIENT

DRUGS (2)
  1. BEVACIZUMAB [Suspect]
     Active Substance: BEVACIZUMAB
     Indication: Product used for unknown indication
  2. ATEZOLIZUMAB [Suspect]
     Active Substance: ATEZOLIZUMAB
     Indication: Product used for unknown indication

REACTIONS (7)
  - Ascites [Unknown]
  - Hepatic encephalopathy [Unknown]
  - Angiopathy [Unknown]
  - Coagulopathy [Unknown]
  - Hepatic enzyme increased [Unknown]
  - Hepatic lesion [Unknown]
  - Jaundice [Unknown]
